FAERS Safety Report 8395538-9 (Version None)
Quarter: 2012Q2

REPORT INFORMATION
  Report Type: 
  Country: None (occurrence: None)
  Receive Date: 20120530
  Receipt Date: 20110630
  Transmission Date: 20120825
  Serious: No
  Sender: FDA-Public Use
  Company Number: US-GLAXOSMITHKLINE-A0934009A

PATIENT
  Age: 55 Year
  Sex: Female

DRUGS (4)
  1. FLONASE [Concomitant]
  2. VITAMIN TAB [Concomitant]
  3. CELEBREX [Concomitant]
  4. VENTOLIN [Suspect]
     Indication: COUGH
     Route: 055
     Dates: start: 20110301

REACTIONS (1)
  - THERAPEUTIC RESPONSE UNEXPECTED [None]
